FAERS Safety Report 6433981 (Version 3)
Quarter: 2014Q3

REPORT INFORMATION
  Report Type: Spontaneous
  Country: US (occurrence: US)
  Receive Date: 20071003
  Receipt Date: 20140910
  Transmission Date: 20150326
  Serious: Yes (Hospitalization, Other)
  Sender: FDA-Public Use
  Company Number: US-AMGEN-QUU244656

PATIENT
  Age: 70 Year
  Sex: Female
  Weight: 69.89 kg

DRUGS (3)
  1. METHOTREXATE [Concomitant]
     Active Substance: METHOTREXATE
     Dosage: 2.5 MG, QWK, 6 TABLET
     Route: 048
     Dates: start: 1991
  2. ACTONEL [Concomitant]
     Active Substance: RISEDRONATE SODIUM
  3. ENBREL [Suspect]
     Active Substance: ETANERCEPT
     Indication: RHEUMATOID ARTHRITIS
     Dosage: 25 MG, 2 TIMES/WK
     Route: 065
     Dates: start: 20031001

REACTIONS (14)
  - Hip fracture [Recovered/Resolved]
  - Injection site pain [Not Recovered/Not Resolved]
  - Osteoarthritis [Unknown]
  - Musculoskeletal pain [Not Recovered/Not Resolved]
  - Rotator cuff syndrome [Recovered/Resolved]
  - Musculoskeletal stiffness [Not Recovered/Not Resolved]
  - Injection site swelling [Recovered/Resolved]
  - Haemarthrosis [Recovered/Resolved]
  - Injection site bruising [Not Recovered/Not Resolved]
  - Rheumatoid arthritis [Unknown]
  - Neuropathy peripheral [Not Recovered/Not Resolved]
  - Fall [Recovered/Resolved]
  - Arthralgia [Not Recovered/Not Resolved]
  - Injection site erythema [Recovered/Resolved]

NARRATIVE: CASE EVENT DATE: 2003
